FAERS Safety Report 18705935 (Version 1)
Quarter: 2021Q1

REPORT INFORMATION
  Report Type: Spontaneous
  Country: US (occurrence: US)
  Receive Date: 20210106
  Receipt Date: 20210106
  Transmission Date: 20210419
  Serious: No
  Sender: FDA-Public Use
  Company Number: US-BAYER-2020-284798

PATIENT
  Age: 58 Year
  Sex: Female

DRUGS (3)
  1. MIRALAX [Suspect]
     Active Substance: POLYETHYLENE GLYCOL 3350
     Indication: GASTROINTESTINAL DISORDER
     Dosage: 1 DOSE IN MORNING OR 1 DOSE IN THE NIGHT
     Route: 048
  2. BENEFIBER FIBER SUPPLEMENT [CYAMOPSIS TETRAGONOLOBA GUM] [Suspect]
     Active Substance: GUAR GUM
     Dosage: UNK
  3. PERRIGO COLD + FLU MULTI RELIEF (ACETAMINOPHEN\GUAIFENESIN\PHENYLEPHRINE HYDROCHLORIDE) [Suspect]
     Active Substance: ACETAMINOPHEN\GUAIFENESIN\PHENYLEPHRINE HYDROCHLORIDE
     Dosage: UNK

REACTIONS (4)
  - Incorrect dose administered [Unknown]
  - Product solubility abnormal [None]
  - Abdominal distension [None]
  - Product contamination physical [None]
